FAERS Safety Report 11428821 (Version 1)
Quarter: 2015Q3

REPORT INFORMATION
  Report Type: Spontaneous
  Country: US (occurrence: None)
  Receive Date: 20150827
  Receipt Date: 20150827
  Transmission Date: 20151125
  Serious: Yes (Other)
  Sender: FDA-Public Use
  Company Number: None

PATIENT
  Age: 72 Year
  Sex: Female
  Weight: 122.47 kg

DRUGS (9)
  1. SPIRIVA [Concomitant]
     Active Substance: TIOTROPIUM BROMIDE MONOHYDRATE
  2. ALLEGRA [Concomitant]
     Active Substance: FEXOFENADINE HYDROCHLORIDE
  3. ADVAIR HFA [Concomitant]
     Active Substance: FLUTICASONE PROPIONATE\SALMETEROL XINAFOATE
  4. ATIVAN [Suspect]
     Active Substance: LORAZEPAM
     Indication: SEDATION
     Dosage: IV PUSH
     Route: 042
     Dates: start: 201508, end: 201508
  5. LANTUS [Concomitant]
     Active Substance: INSULIN GLARGINE
  6. SINGULAIR [Concomitant]
     Active Substance: MONTELUKAST SODIUM
  7. VITAMIN D [Concomitant]
     Active Substance: CHOLECALCIFEROL
  8. CARDIZEM [Concomitant]
     Active Substance: DILTIAZEM HYDROCHLORIDE
  9. COLACE [Concomitant]
     Active Substance: DOCUSATE SODIUM

REACTIONS (12)
  - Disorientation [None]
  - Irritability [None]
  - Loss of consciousness [None]
  - Hallucination [None]
  - Mental status changes [None]
  - Disturbance in attention [None]
  - Amnesia [None]
  - Speech disorder [None]
  - Agitation [None]
  - Paranoia [None]
  - Psychotic disorder [None]
  - Confusional state [None]

NARRATIVE: CASE EVENT DATE: 201508
